FAERS Safety Report 22161485 (Version 1)
Quarter: 2023Q1

REPORT INFORMATION
  Report Type: Spontaneous
  Country: US (occurrence: US)
  Receive Date: 20230331
  Receipt Date: 20230331
  Transmission Date: 20230418
  Serious: Yes (Life-Threatening, Hospitalization, Disabling, Other)
  Sender: FDA-Public Use
  Company Number: US-PFIZER INC-202300137709

PATIENT
  Age: 75 Year
  Sex: Male
  Weight: 86.64 kg

DRUGS (1)
  1. METHOTREXATE SODIUM [Suspect]
     Active Substance: METHOTREXATE SODIUM
     Indication: Arthritis
     Dosage: UNK
     Dates: start: 2022, end: 2022

REACTIONS (16)
  - Near death experience [Not Recovered/Not Resolved]
  - Hepatic cirrhosis [Not Recovered/Not Resolved]
  - Hepatic vein occlusion [Unknown]
  - Renal impairment [Not Recovered/Not Resolved]
  - Haematological infection [Not Recovered/Not Resolved]
  - Cardiac disorder [Not Recovered/Not Resolved]
  - Impaired self-care [Unknown]
  - Gait disturbance [Unknown]
  - Weight fluctuation [Unknown]
  - Swelling [Unknown]
  - Fluid retention [Not Recovered/Not Resolved]
  - Vomiting [Unknown]
  - Illness [Unknown]
  - Asthenia [Unknown]
  - Blood test abnormal [Unknown]
  - Abdominal distension [Unknown]

NARRATIVE: CASE EVENT DATE: 20230101
